FAERS Safety Report 25151187 (Version 1)
Quarter: 2025Q2

REPORT INFORMATION
  Report Type: Report from Study
  Country: CA (occurrence: CA)
  Receive Date: 20250402
  Receipt Date: 20250402
  Transmission Date: 20250716
  Serious: Yes (Hospitalization)
  Sender: DR REDDYS
  Company Number: CA-DRL-USA-CAN/2025/02/002943

PATIENT
  Age: 82 Year
  Sex: Female

DRUGS (1)
  1. ZOLEDRONIC ACID [Suspect]
     Active Substance: ZOLEDRONIC ACID
     Indication: Osteoporosis
     Route: 065
     Dates: start: 20240326, end: 20240326

REACTIONS (4)
  - Arteriosclerosis [Unknown]
  - Dental implantation [Unknown]
  - Chest pain [Unknown]
  - Bone pain [Unknown]

NARRATIVE: CASE EVENT DATE: 20250211
